FAERS Safety Report 7309647-6 (Version None)
Quarter: 2011Q1

REPORT INFORMATION
  Report Type: 
  Country: None (occurrence: None)
  Receive Date: 20110224
  Receipt Date: 20110216
  Transmission Date: 20110831
  Serious: Yes (Other)
  Sender: FDA-Public Use
  Company Number: JP-SP-2011-00739

PATIENT
  Age: 88 Year
  Sex: Female

DRUGS (1)
  1. TICE BCG [Suspect]
     Indication: BLADDER CANCER STAGE 0, WITH CANCER IN SITU
     Dosage: NOT REPORTED
     Route: 043

REACTIONS (4)
  - TRANSITIONAL CELL CARCINOMA [None]
  - HAEMATURIA [None]
  - SQUAMOUS CELL CARCINOMA [None]
  - BLADDER TAMPONADE [None]
